FAERS Safety Report 6679566-7 (Version None)
Quarter: 2010Q2

REPORT INFORMATION
  Report Type: 
  Country: None (occurrence: None)
  Receive Date: 20100413
  Receipt Date: 20100407
  Transmission Date: 20101027
  Serious: Yes (Other)
  Sender: FDA-Public Use
  Company Number: GXKR2010BE00528

PATIENT
  Sex: Male
  Weight: 70 kg

DRUGS (6)
  1. TRAMADOL SANDOZ (NGX) [Suspect]
     Indication: HERNIA
     Dosage: 50 MG, BID; 0.5 DF IN THE MORNING AND 0.5 DF IN THE EVENING
     Route: 048
     Dates: start: 20080101
  2. SIMVASTATIN [Concomitant]
     Indication: BLOOD CHOLESTEROL
     Dosage: 20 MG, QD
  3. COVERAM (PERINDOPRIL ARGININE/AMLODIPINE) [Concomitant]
     Dosage: 5 MG, QD
  4. BISOPROLOL [Concomitant]
     Dosage: 5 MG, QD (IN THE EVENING)
  5. METFORMAX [Concomitant]
     Dosage: 850 MG, QD
  6. TAMSULOSIN HCL [Concomitant]
     Dosage: 0.4 MG, QD

REACTIONS (7)
  - DIZZINESS [None]
  - DRUG DEPENDENCE [None]
  - DRUG WITHDRAWAL SYNDROME [None]
  - HEADACHE [None]
  - HYPERHIDROSIS [None]
  - PARAESTHESIA [None]
  - PERIPHERAL COLDNESS [None]
